FAERS Safety Report 9597016 (Version 3)
Quarter: 2014Q1

REPORT INFORMATION
  Report Type: Report from Study
  Country: CA (occurrence: CA)
  Receive Date: 20131004
  Receipt Date: 20140131
  Transmission Date: 20141002
  Serious: Yes (Other)
  Sender: FDA-Public Use
  Company Number: CA-ABBVIE-13P-028-1094623-00

PATIENT
  Age: 76 Year
  Sex: Male
  Weight: 65.83 kg

DRUGS (3)
  1. LUPRON DEPOT [Suspect]
     Indication: PROSTATE CANCER
     Route: 050
     Dates: start: 20090604
  2. ATACAND [Concomitant]
     Indication: PRODUCT USED FOR UNKNOWN INDICATION
  3. CRESTOR [Concomitant]
     Indication: PRODUCT USED FOR UNKNOWN INDICATION

REACTIONS (4)
  - General physical health deterioration [Recovered/Resolved]
  - Prostate cancer [Unknown]
  - Prostatic specific antigen increased [Recovered/Resolved]
  - Inguinal hernia [Not Recovered/Not Resolved]
